FAERS Safety Report 16346575 (Version 2)
Quarter: 2019Q3

REPORT INFORMATION
  Report Type: Spontaneous
  Country: US (occurrence: US)
  Receive Date: 20190523
  Receipt Date: 20190712
  Transmission Date: 20191004
  Serious: No
  Sender: FDA-Public Use
  Company Number: US-AMGEN INC.-USASP2019079619

PATIENT
  Age: 69 Year
  Sex: Female

DRUGS (3)
  1. EXCEDRIN [CAFFEINE;PARACETAMOL] [Concomitant]
     Active Substance: ACETAMINOPHEN\CAFFEINE
     Indication: MIGRAINE
     Dosage: UNK UNK, AS NECESSARY
  2. AIMOVIG [Suspect]
     Active Substance: ERENUMAB-AOOE
     Indication: MIGRAINE
     Dosage: 70 MILLIGRAM, QMO
     Route: 065
     Dates: start: 201901
  3. SUMATRIPTAN. [Suspect]
     Active Substance: SUMATRIPTAN
     Indication: MIGRAINE
     Dosage: UNK UNK, AS NECESSARY
     Route: 065

REACTIONS (9)
  - Chest pain [Unknown]
  - Fall [Unknown]
  - Wrong technique in product usage process [Unknown]
  - Head injury [Unknown]
  - Skin haemorrhage [Unknown]
  - Asthenia [Unknown]
  - Circadian rhythm sleep disorder [Unknown]
  - Drug ineffective [Unknown]
  - Lip haemorrhage [Unknown]

NARRATIVE: CASE EVENT DATE: 2019
